FAERS Safety Report 25574860 (Version 1)
Quarter: 2025Q3

REPORT INFORMATION
  Report Type: Spontaneous
  Country: EU (occurrence: EU)
  Receive Date: 20250718
  Receipt Date: 20250718
  Transmission Date: 20251021
  Serious: Yes (Other)
  Sender: CHEPLAPHARM
  Company Number: None

PATIENT
  Age: 41 Year
  Sex: Male

DRUGS (4)
  1. CLONAZEPAM [Suspect]
     Active Substance: CLONAZEPAM
  2. CANNABIS SATIVA SUBSP. INDICA TOP [Suspect]
     Active Substance: CANNABIS SATIVA SUBSP. INDICA TOP
  3. MIDOMAFETAMINE [Suspect]
     Active Substance: MIDOMAFETAMINE
  4. PREGABALIN [Suspect]
     Active Substance: PREGABALIN

REACTIONS (7)
  - Drug use disorder [Unknown]
  - Sinus tachycardia [Unknown]
  - Disorientation [Unknown]
  - Unresponsive to stimuli [Unknown]
  - Hypertension [Unknown]
  - Mydriasis [Unknown]
  - Toxicity to various agents [Unknown]
